FAERS Safety Report 4955243-5 (Version None)
Quarter: 2006Q1

REPORT INFORMATION
  Report Type: 
  Country: None (occurrence: None)
  Receive Date: 20060328
  Receipt Date: 20050824
  Transmission Date: 20060701
  Serious: Yes (Death, Hospitalization, Other)
  Sender: FDA-Public Use
  Company Number: PHHO2005CA13514

PATIENT
  Age: 68 Year
  Sex: Male

DRUGS (9)
  1. CLOZARIL [Suspect]
     Indication: PARKINSON'S DISEASE
     Dosage: 0.625 MG, UNK
     Route: 048
     Dates: start: 20050816, end: 20050824
  2. SINEMET [Concomitant]
     Dosage: 200/50, HALF TABLET QID
  3. FERROUS SULFATE TAB [Concomitant]
     Dosage: 300 MG, TID
  4. FLORINEF [Concomitant]
     Dosage: 0.1 MG, QD
  5. AMATINE [Concomitant]
     Dosage: 2.5 MG, BID
  6. ESCITALOPRAM OXALATE [Concomitant]
     Dosage: 5 MG, QD
  7. LACTULOSE [Concomitant]
     Dosage: 5 MG, 1 TSP. QD
     Route: 048
  8. PULMICORT [Concomitant]
     Dosage: 0.25 MG, QD
  9. VENTOLIN [Concomitant]
     Dosage: 0.5 MG, BID

REACTIONS (3)
  - CLONUS [None]
  - DEATH [None]
  - HYPERTENSION [None]
